FAERS Safety Report 17745642 (Version 1)
Quarter: 2020Q2

REPORT INFORMATION
  Report Type: Spontaneous
  Country: CA (occurrence: CA)
  Receive Date: 20200505
  Receipt Date: 20200505
  Transmission Date: 20200714
  Serious: Yes (Other)
  Sender: FDA-Public Use
  Company Number: CA-TEVA-2020-CA-1231245

PATIENT
  Age: 72 Year
  Sex: Female
  Weight: 98 kg

DRUGS (13)
  1. CANNABIS SATIVA SUBSP. SATIVA FLOWERING TOP [Suspect]
     Active Substance: CANNABIS SATIVA FLOWERING TOP
     Dosage: 40 MILLIGRAM DAILY;
     Route: 048
  2. LASIX [Concomitant]
     Active Substance: FUROSEMIDE
  3. ROSUVASTATIN. [Suspect]
     Active Substance: ROSUVASTATIN
  4. CANNABIS SATIVA SUBSP. SATIVA FLOWERING TOP [Suspect]
     Active Substance: CANNABIS SATIVA FLOWERING TOP
     Dosage: 40 MILLIGRAM DAILY;
     Route: 048
  5. ASA [Concomitant]
     Active Substance: ASPIRIN
  6. MAVIK [Concomitant]
     Active Substance: TRANDOLAPRIL
  7. CANNABIS SATIVA SUBSP. SATIVA FLOWERING TOP [Suspect]
     Active Substance: CANNABIS SATIVA FLOWERING TOP
     Indication: PSORIATIC ARTHROPATHY
     Dosage: 16 MILLIGRAM DAILY;
     Route: 048
  8. EZETIMIBE. [Concomitant]
     Active Substance: EZETIMIBE
  9. INFLUENZA VACCINE [Concomitant]
     Active Substance: INFLUENZA VIRUS VACCINE
  10. KETOCONAZOLE. [Concomitant]
     Active Substance: KETOCONAZOLE
  11. PARIET [Concomitant]
     Active Substance: RABEPRAZOLE SODIUM
  12. INDAPAMIDE. [Concomitant]
     Active Substance: INDAPAMIDE
  13. METRONIDAZOLE. [Concomitant]
     Active Substance: METRONIDAZOLE

REACTIONS (2)
  - Condition aggravated [Not Recovered/Not Resolved]
  - Hepatic function abnormal [Not Recovered/Not Resolved]
